FAERS Safety Report 7454951-4 (Version None)
Quarter: 2011Q2

REPORT INFORMATION
  Report Type: 
  Country: None (occurrence: None)
  Receive Date: 20110503
  Receipt Date: 20110423
  Transmission Date: 20111010
  Serious: Yes (Hospitalization)
  Sender: FDA-Public Use
  Company Number: FR-BRISTOL-MYERS SQUIBB COMPANY-15682164

PATIENT
  Age: 84 Year
  Sex: Male

DRUGS (4)
  1. HEPARIN SODIUM [Suspect]
     Indication: PROPHYLAXIS
  2. WARFARIN SODIUM [Suspect]
  3. LEPIRUDIN [Suspect]
  4. DANAPAROID SODIUM [Suspect]
     Dosage: 1 DF=200 IU/IV HOUR

REACTIONS (5)
  - PNEUMONIA [None]
  - THROMBOSIS [None]
  - RENAL IMPAIRMENT [None]
  - ACCIDENTAL OVERDOSE [None]
  - HEPARIN-INDUCED THROMBOCYTOPENIA [None]
